FAERS Safety Report 4408814-9 (Version None)
Quarter: 2004Q3

REPORT INFORMATION
  Report Type: 
  Country: None (occurrence: None)
  Receive Date: 20040727
  Receipt Date: 20040706
  Transmission Date: 20050211
  Serious: Yes (Death, Other)
  Sender: FDA-Public Use
  Company Number: JP-MERCK-0407USA00699

PATIENT
  Age: 16 Year
  Sex: Female

DRUGS (27)
  1. ZOVIRAX [Concomitant]
     Indication: HERPES VIRUS INFECTION
     Route: 042
  2. ALBUMIN HUMAN [Concomitant]
     Route: 042
     Dates: start: 20040217
  3. AMIKACIN BANYU [Concomitant]
     Indication: FEBRILE NEUTROPENIA
     Route: 041
     Dates: end: 20040215
  4. CATECHOLAMINE [Concomitant]
     Route: 065
  5. MODACIN [Concomitant]
     Indication: FEBRILE NEUTROPENIA
     Route: 042
     Dates: end: 20040208
  6. MODACIN [Concomitant]
     Route: 042
     Dates: start: 20040228
  7. PRIMAXIN [Suspect]
     Indication: FEBRILE NEUTROPENIA
     Route: 041
     Dates: start: 20040216
  8. FRAGMIN [Concomitant]
     Indication: ANTICOAGULANT THERAPY
     Route: 051
     Dates: start: 20040130, end: 20040226
  9. DOBUTREX [Concomitant]
     Indication: BLOOD PRESSURE ABNORMAL
     Route: 041
     Dates: start: 20040217
  10. INOVAN [Concomitant]
     Indication: BLOOD PRESSURE ABNORMAL
     Route: 042
     Dates: start: 20040207
  11. PEPCID [Concomitant]
     Indication: PROPHYLAXIS AGAINST GASTROINTESTINAL ULCER
     Route: 042
  12. GRAN [Concomitant]
     Indication: NEUTROPENIA
     Route: 041
     Dates: start: 20040210
  13. LASIX [Concomitant]
     Indication: POLYURIA
     Route: 042
     Dates: start: 20040224
  14. IMMUNE GLOBULIN INTRAVENOUS (HUMAN) [Concomitant]
     Indication: HYPOGAMMAGLOBULINAEMIA
     Route: 042
     Dates: start: 20040204
  15. INSULIN [Concomitant]
     Route: 065
  16. HUMULIN R [Concomitant]
     Indication: HYPERGLYCAEMIA
     Route: 051
  17. METHOTREXATE [Concomitant]
     Indication: STEM CELL TRANSPLANT
     Route: 042
     Dates: start: 20040202, end: 20040205
  18. METHOTREXATE [Concomitant]
     Route: 042
     Dates: start: 20040210, end: 20040210
  19. METHOTREXATE [Concomitant]
     Route: 042
     Dates: start: 20040211, end: 20040211
  20. SOLU-MEDROL [Concomitant]
     Indication: PHARYNGEAL OEDEMA
     Route: 041
     Dates: start: 20040217, end: 20040219
  21. SOLU-MEDROL [Concomitant]
     Route: 041
     Dates: start: 20040226, end: 20040228
  22. MICAFUNGIN [Suspect]
     Indication: FEBRILE NEUTROPENIA
     Route: 041
     Dates: start: 20040209
  23. MINOMYCIN [Concomitant]
     Indication: FEBRILE NEUTROPENIA
     Route: 041
     Dates: start: 20040208
  24. MORPHINE HYDROCHLORIDE [Concomitant]
     Indication: LARYNGEAL PAIN
     Route: 042
     Dates: start: 20040205
  25. PREDONINE [Concomitant]
     Indication: BLOOD STEM CELL TRANSPLANT FAILURE
     Route: 042
     Dates: start: 20040222
  26. PROGRAF [Suspect]
     Indication: IMMUNOSUPPRESSION
     Route: 051
     Dates: start: 20040130, end: 20040226
  27. MIRACLID [Concomitant]
     Route: 041
     Dates: start: 20040217

REACTIONS (6)
  - ANAPHYLACTIC REACTION [None]
  - BLOOD GLUCOSE INCREASED [None]
  - DIALYSIS [None]
  - HAEMOLYTIC URAEMIC SYNDROME [None]
  - RENAL FAILURE ACUTE [None]
  - STEM CELL TRANSPLANT [None]
